FAERS Safety Report 25715736 (Version 1)
Quarter: 2025Q3

REPORT INFORMATION
  Report Type: Spontaneous
  Country: US (occurrence: US)
  Receive Date: 20250822
  Receipt Date: 20250822
  Transmission Date: 20251020
  Serious: No
  Sender: NANTKWEST
  Company Number: US-NantWorks-2025-US-NANT-00025

PATIENT

DRUGS (2)
  1. ANKTIVA [Suspect]
     Active Substance: NOGAPENDEKIN ALFA INBAKICEPT-PMLN
     Indication: Bladder transitional cell carcinoma
     Route: 043
     Dates: start: 20250425
  2. BCG [Concomitant]
     Indication: Bladder transitional cell carcinoma
     Route: 043
     Dates: start: 20250425

REACTIONS (2)
  - Dysuria [Unknown]
  - Pollakiuria [Unknown]
